FAERS Safety Report 7023964-9 (Version None)
Quarter: 2010Q4

REPORT INFORMATION
  Report Type: 
  Country: None (occurrence: None)
  Receive Date: 20101001
  Receipt Date: 20100920
  Transmission Date: 20110411
  Serious: Yes (Other)
  Sender: FDA-Public Use
  Company Number: US-ELI_LILLY_AND_COMPANY-US201009005867

PATIENT
  Sex: Male

DRUGS (9)
  1. ZYPREXA [Suspect]
  2. ZOLOFT [Concomitant]
  3. LORAZEPAM [Concomitant]
  4. QUETIAPINE [Concomitant]
  5. PAROXETINE HCL [Concomitant]
  6. VENLAFAXINE [Concomitant]
     Dosage: 37.5 MG, UNK
  7. VENLAFAXINE [Concomitant]
     Dosage: 75 MG, UNK
  8. VENLAFAXINE [Concomitant]
     Dosage: 150 MG, UNK
  9. VENLAFAXINE [Concomitant]
     Dosage: 75 MG, UNK

REACTIONS (4)
  - AGITATION [None]
  - ANXIETY [None]
  - FATIGUE [None]
  - MOVEMENT DISORDER [None]
